FAERS Safety Report 9785269 (Version 1)
Quarter: 2013Q4

REPORT INFORMATION
  Report Type: Spontaneous
  Country: TR (occurrence: TR)
  Receive Date: 20131227
  Receipt Date: 20131227
  Transmission Date: 20140711
  Serious: No
  Sender: FDA-Public Use
  Company Number: TR-JNJFOC-20131213402

PATIENT
  Sex: Female

DRUGS (1)
  1. DUROGESIC [Suspect]
     Indication: NECK PAIN
     Route: 062

REACTIONS (2)
  - Dizziness [Unknown]
  - Drug administration error [Recovered/Resolved]
